FAERS Safety Report 6709972-3 (Version None)
Quarter: 2010Q2

REPORT INFORMATION
  Report Type: 
  Country: None (occurrence: None)
  Receive Date: 20100503
  Receipt Date: 20100503
  Transmission Date: 20101027
  Serious: No
  Sender: FDA-Public Use
  Company Number: None

PATIENT
  Age: 14 Month
  Sex: Female
  Weight: 8.1647 kg

DRUGS (1)
  1. MOTRIN [Suspect]
     Indication: TEETHING
     Dosage: 1.25 ML EVERY 6-8HRS PO
     Route: 048
     Dates: start: 20100427, end: 20100427

REACTIONS (3)
  - LETHARGY [None]
  - SOMNOLENCE [None]
  - UNEVALUABLE EVENT [None]
